FAERS Safety Report 25884369 (Version 1)
Quarter: 2025Q4

REPORT INFORMATION
  Report Type: Spontaneous
  Country: GB (occurrence: GB)
  Receive Date: 20251006
  Receipt Date: 20251006
  Transmission Date: 20260117
  Serious: Yes (Other)
  Sender: TORRENT PHARMA INC.
  Company Number: None

PATIENT
  Age: 67 Year
  Sex: Female
  Weight: 59 kg

DRUGS (2)
  1. CETIRIZINE [Suspect]
     Active Substance: CETIRIZINE HYDROCHLORIDE
     Indication: Sinusitis
     Dosage: 10MG (AT NIGHT)
     Route: 065
     Dates: start: 20250223, end: 20250915
  2. MOMETASONE [Concomitant]
     Active Substance: MOMETASONE
     Indication: Product used for unknown indication
     Dosage: UNKNOWN
     Route: 065

REACTIONS (8)
  - Dry mouth [Recovering/Resolving]
  - Antiallergic therapy [Recovering/Resolving]
  - Constipation [Recovering/Resolving]
  - Speech disorder [Unknown]
  - Weight decreased [Unknown]
  - Faecaloma [Unknown]
  - Abdominal distension [Unknown]
  - Therapy cessation [Unknown]

NARRATIVE: CASE EVENT DATE: 20250521
